FAERS Safety Report 4948756-3 (Version None)
Quarter: 2006Q1

REPORT INFORMATION
  Report Type: 
  Country: None (occurrence: None)
  Receive Date: 20060321
  Receipt Date: 20060316
  Transmission Date: 20060701
  Serious: Yes (Life-Threatening, Hospitalization)
  Sender: FDA-Public Use
  Company Number: FR-SP-2006-00609

PATIENT
  Age: 49 Year
  Sex: Male
  Weight: 70 kg

DRUGS (1)
  1. IMMUCYST [Suspect]
     Indication: CARCINOMA IN SITU OF BLADDER
     Route: 043
     Dates: start: 20051025, end: 20051115

REACTIONS (4)
  - CHOLESTASIS [None]
  - DISSEMINATED TUBERCULOSIS [None]
  - DRUG INTOLERANCE [None]
  - HEPATITIS [None]
